FAERS Safety Report 7988365-5 (Version None)
Quarter: 2011Q4

REPORT INFORMATION
  Report Type: 
  Country: None (occurrence: None)
  Receive Date: 20111216
  Receipt Date: 20111207
  Transmission Date: 20120403
  Serious: Yes (Hospitalization)
  Sender: FDA-Public Use
  Company Number: US-VIROPHARMA INCORPORATED-20111027CINRY2400

PATIENT
  Sex: Male

DRUGS (8)
  1. CINRYZE [Suspect]
     Indication: HEREDITARY ANGIOEDEMA
     Dates: start: 20100801
  2. CLINDAMYCIN [Suspect]
     Indication: ANTIBIOTIC PROPHYLAXIS
     Dates: start: 20111018
  3. ISOSORBIDE DINITRATE [Concomitant]
  4. PRASUGREL [Concomitant]
     Indication: ANTIPLATELET THERAPY
     Dates: start: 20110301
  5. CEPHADYN [Suspect]
     Indication: ANTIBIOTIC PROPHYLAXIS
     Dosage: UNKNOWN
     Dates: start: 20111018
  6. AMLODIPINE [Concomitant]
     Indication: HYPERTENSION
  7. CEPHALOSPORIN [Concomitant]
     Indication: CELLULITIS
     Dates: start: 20110101
  8. RANEXA [Concomitant]
     Indication: ANGINA PECTORIS

REACTIONS (4)
  - FISTULA [None]
  - CELLULITIS [None]
  - DRUG INTERACTION [None]
  - PSEUDOMONAL BACTERAEMIA [None]
